FAERS Safety Report 9632546 (Version 1)
Quarter: 2013Q4

REPORT INFORMATION
  Report Type: Spontaneous
  Country: DE (occurrence: DE)
  Receive Date: 20131018
  Receipt Date: 20131018
  Transmission Date: 20140711
  Serious: Yes (Life-Threatening, Hospitalization)
  Sender: FDA-Public Use
  Company Number: DE-GE HEALTHCARE MEDICAL DIAGNOSTICS-VISP-PR-1310S-0865

PATIENT
  Age: 73 Year
  Sex: Male
  Weight: 90 kg

DRUGS (3)
  1. VISIPAQUE [Suspect]
     Indication: DYSPNOEA
     Route: 042
     Dates: start: 20131010, end: 20131010
  2. VISIPAQUE [Suspect]
     Indication: CORONARY ARTERY DISEASE
  3. VISIPAQUE [Suspect]
     Indication: DIAGNOSTIC PROCEDURE

REACTIONS (7)
  - Nasal obstruction [Recovered/Resolved]
  - Feeling hot [Recovered/Resolved]
  - Blood pressure fluctuation [Recovered/Resolved]
  - Heart rate increased [Recovered/Resolved]
  - Tremor [Recovered/Resolved]
  - Convulsion [Recovered/Resolved]
  - Erythema [Recovered/Resolved]
